FAERS Safety Report 9258819 (Version 2)
Quarter: 2013Q4

REPORT INFORMATION
  Report Type: Spontaneous
  Country: CA (occurrence: CA)
  Receive Date: 20130426
  Receipt Date: 20131114
  Transmission Date: 20140711
  Serious: Yes (Death, Hospitalization)
  Sender: FDA-Public Use
  Company Number: CA-GLAXOSMITHKLINE-A1008067A

PATIENT
  Sex: Female

DRUGS (12)
  1. TYKERB [Suspect]
     Indication: BREAST CANCER METASTATIC
     Dosage: 1250MG PER DAY
     Route: 048
     Dates: start: 20121128
  2. RISPERIDONE [Concomitant]
  3. REPAGLINIDE [Concomitant]
  4. PROCYCLIDINE [Concomitant]
  5. DIVALPROEX [Concomitant]
  6. AMLODIPINE [Concomitant]
  7. FENTANYL PATCH [Concomitant]
  8. LACTULOSE [Concomitant]
  9. LASIX [Concomitant]
  10. VITAMIN D [Concomitant]
  11. XELODA [Concomitant]
  12. ARTIFICIAL TEARS [Concomitant]

REACTIONS (5)
  - Death [Fatal]
  - Dry eye [Not Recovered/Not Resolved]
  - Lymphoedema [Not Recovered/Not Resolved]
  - Nausea [Recovered/Resolved]
  - Blood glucose increased [Not Recovered/Not Resolved]
